FAERS Safety Report 10570719 (Version 1)
Quarter: 2014Q4

REPORT INFORMATION
  Report Type: Spontaneous
  Country: US (occurrence: None)
  Receive Date: 20141106
  Receipt Date: 20141106
  Transmission Date: 20150529
  Serious: No
  Sender: FDA-Public Use
  Company Number: None

PATIENT
  Sex: Male

DRUGS (1)
  1. ACETAMINOPHEN 500 MG 227 [Suspect]
     Active Substance: ACETAMINOPHEN

REACTIONS (5)
  - Poor quality drug administered [None]
  - Nausea [None]
  - Diarrhoea [None]
  - Product quality issue [None]
  - Product contamination microbial [None]

NARRATIVE: CASE EVENT DATE: 20141027
